FAERS Safety Report 19788982 (Version 1)
Quarter: 2021Q3

REPORT INFORMATION
  Report Type: Spontaneous
  Country: GB (occurrence: GB)
  Receive Date: 20210904
  Receipt Date: 20210904
  Transmission Date: 20211014
  Serious: Yes (Death)
  Sender: FDA-Public Use
  Company Number: NVSC2021GB200135

PATIENT
  Age: 32 Year
  Sex: Male
  Weight: 118 kg

DRUGS (5)
  1. ZAPONEX [Suspect]
     Active Substance: CLOZAPINE
     Indication: SCHIZOAFFECTIVE DISORDER
     Dosage: UNK (ALSO INDICATED FOR TREATMENT?RESISTANT SCHIZOPHRENIA)
     Route: 048
     Dates: start: 20160615
  2. DIAZEPAM. [Suspect]
     Active Substance: DIAZEPAM
     Indication: PRODUCT USED FOR UNKNOWN INDICATION
     Dosage: UNK
     Route: 065
  3. CLONAZEPAM. [Suspect]
     Active Substance: CLONAZEPAM
     Indication: PSYCHOTIC DISORDER
     Dosage: UNK
     Route: 065
  4. PROMETHAZINE [Suspect]
     Active Substance: PROMETHAZINE HYDROCHLORIDE
     Indication: PRODUCT USED FOR UNKNOWN INDICATION
     Dosage: UNK
     Route: 065
  5. LITHIUM. [Concomitant]
     Active Substance: LITHIUM
     Indication: MOOD SWINGS
     Dosage: 600 MG, QD (AS MOOD STABILISER FOR THE SCHIZOAFFECTIVE DISORDER)
     Route: 048

REACTIONS (7)
  - Arteriosclerosis [Not Recovered/Not Resolved]
  - Arteriosclerosis coronary artery [Fatal]
  - Oedema [Not Recovered/Not Resolved]
  - Toxicity to various agents [Fatal]
  - Intentional product misuse [Recovered/Resolved]
  - Steatohepatitis [Not Recovered/Not Resolved]
  - Cyanosis [Not Recovered/Not Resolved]

NARRATIVE: CASE EVENT DATE: 202104
